FAERS Safety Report 5728870-5 (Version None)
Quarter: 2008Q2

REPORT INFORMATION
  Report Type: 
  Country: None (occurrence: None)
  Receive Date: 20080430
  Receipt Date: 20071107
  Transmission Date: 20081010
  Serious: Yes (Hospitalization)
  Sender: FDA-Public Use
  Company Number: E3810-01369-SPO-AU

PATIENT
  Age: 80 Year
  Sex: Female

DRUGS (7)
  1. RABEPRAZOLE SODIUM [Suspect]
     Dosage: 20 MG, ORAL
     Route: 048
     Dates: end: 20061215
  2. FOSINOPRIL-HYDROCHLOROTHIAZIDE (FOSINOPRIL) [Suspect]
     Dosage: ORAL
     Route: 048
     Dates: end: 20061214
  3. COLCHICINE (COLCHICINE) [Suspect]
     Dosage: 5 MG, ORAL
     Route: 048
     Dates: end: 20061214
  4. BUDESONIDE [Concomitant]
  5. PIZOTIFEN MALEATE (PIZOTIFEN MALEATE) [Concomitant]
  6. ATENOLOL [Concomitant]
  7. ATORVASTATIN CALCIUM [Concomitant]

REACTIONS (1)
  - RENAL FAILURE ACUTE [None]
